FAERS Safety Report 7527400-5 (Version None)
Quarter: 2011Q2

REPORT INFORMATION
  Report Type: 
  Country: None (occurrence: None)
  Receive Date: 20110607
  Receipt Date: 20110527
  Transmission Date: 20111010
  Serious: Yes (Hospitalization, Other)
  Sender: FDA-Public Use
  Company Number: US-JNJFOC-20110400910

PATIENT
  Sex: Female
  Weight: 83 kg

DRUGS (1)
  1. NUCYNTA [Suspect]
     Indication: PAIN
     Dosage: AS NECESSARY
     Route: 065

REACTIONS (2)
  - DEPRESSED LEVEL OF CONSCIOUSNESS [None]
  - DRUG SCREEN POSITIVE [None]
